FAERS Safety Report 10346127 (Version 2)
Quarter: 2014Q3

REPORT INFORMATION
  Report Type: Spontaneous
  Country: JP (occurrence: JP)
  Receive Date: 20140728
  Receipt Date: 20140728
  Transmission Date: 20150326
  Serious: Yes (Death, Life-Threatening)
  Sender: FDA-Public Use
  Company Number: JP-ASTRAZENECA-2014SE44543

PATIENT
  Age: 89 Year
  Sex: Female

DRUGS (11)
  1. DEPAKENE [Concomitant]
     Active Substance: VALPROIC ACID
     Indication: STATUS EPILEPTICUS
     Route: 048
     Dates: start: 20140507
  2. ANHIBA [Concomitant]
     Active Substance: ACETAMINOPHEN
     Route: 062
  3. IMIDAPRIL HYDROCHLORIDE [Concomitant]
     Active Substance: IMIDAPRIL HYDROCHLORIDE
     Indication: HYPERTENSION
     Dates: start: 20140430
  4. LANDSEN [Concomitant]
     Active Substance: CLONAZEPAM
     Indication: FACIAL SPASM
     Dates: start: 20140514
  5. FAMOTIDINE. [Concomitant]
     Active Substance: FAMOTIDINE
     Indication: GASTRIC ULCER
     Dates: start: 20140430
  6. MAXIPIME [Concomitant]
     Active Substance: CEFEPIME HYDROCHLORIDE
     Dates: end: 20140526
  7. MEROPEN [Suspect]
     Active Substance: MEROPENEM
     Indication: PNEUMONIA
     Route: 042
     Dates: start: 20140526
  8. VANCOMYCIN HYDROCHLORIDE. [Suspect]
     Active Substance: VANCOMYCIN HYDROCHLORIDE
     Indication: PNEUMONIA STAPHYLOCOCCAL
     Route: 065
     Dates: start: 20140523, end: 20140609
  9. PIPERACILLIN [Concomitant]
     Active Substance: PIPERACILLIN
     Dates: end: 20140526
  10. DEPAKENE [Concomitant]
     Active Substance: VALPROIC ACID
     Indication: STATUS EPILEPTICUS
     Route: 048
     Dates: start: 20140214, end: 20140506
  11. BAYASPIRIN [Concomitant]
     Active Substance: ASPIRIN
     Dates: start: 20140115

REACTIONS (2)
  - Stevens-Johnson syndrome [Recovering/Resolving]
  - Sepsis [Fatal]

NARRATIVE: CASE EVENT DATE: 20140603
